FAERS Safety Report 6866971-9 (Version None)
Quarter: 2010Q3

REPORT INFORMATION
  Report Type: 
  Country: None (occurrence: None)
  Receive Date: 20100722
  Receipt Date: 20100722
  Transmission Date: 20110219
  Serious: Yes (Other)
  Sender: FDA-Public Use
  Company Number: None

PATIENT
  Sex: Female
  Weight: 68.0396 kg

DRUGS (2)
  1. TRILIPIX [Suspect]
     Indication: HIGH DENSITY LIPOPROTEIN DECREASED
     Dosage: 135 MG DAILY PO
     Route: 048
     Dates: start: 20100101
  2. TRILIPIX [Suspect]
     Indication: LIPIDS INCREASED
     Dosage: 135 MG DAILY PO
     Route: 048
     Dates: start: 20100101

REACTIONS (2)
  - HIGH DENSITY LIPOPROTEIN DECREASED [None]
  - LIPIDS INCREASED [None]
